FAERS Safety Report 25902682 (Version 1)
Quarter: 2025Q4

REPORT INFORMATION
  Report Type: Report from Study
  Country: EU (occurrence: EU)
  Receive Date: 20251009
  Receipt Date: 20251009
  Transmission Date: 20260117
  Serious: Yes (Other)
  Sender: MYLAN
  Company Number: None

PATIENT
  Age: 79 Year
  Sex: Female

DRUGS (20)
  1. CANDESARTAN [Suspect]
     Active Substance: CANDESARTAN
     Indication: Product used for unknown indication
     Dosage: 32 MILLIGRAM, QD, 32MG 1 TABLET DAILY
     Dates: start: 20250101
  2. CANDESARTAN [Suspect]
     Active Substance: CANDESARTAN
     Dosage: 32 MILLIGRAM, QD, 32MG 1 TABLET DAILY
     Route: 048
     Dates: start: 20250101
  3. CANDESARTAN [Suspect]
     Active Substance: CANDESARTAN
     Dosage: 32 MILLIGRAM, QD, 32MG 1 TABLET DAILY
     Route: 048
     Dates: start: 20250101
  4. CANDESARTAN [Suspect]
     Active Substance: CANDESARTAN
     Dosage: 32 MILLIGRAM, QD, 32MG 1 TABLET DAILY
     Dates: start: 20250101
  5. BISOPROLOL [Suspect]
     Active Substance: BISOPROLOL
     Indication: Product used for unknown indication
     Dosage: 1.25 MILLIGRAM, QD, 1.25 MG 1 TABLET DAILY
     Dates: start: 20250101
  6. BISOPROLOL [Suspect]
     Active Substance: BISOPROLOL
     Dosage: 1.25 MILLIGRAM, QD, 1.25 MG 1 TABLET DAILY
     Route: 048
     Dates: start: 20250101
  7. BISOPROLOL [Suspect]
     Active Substance: BISOPROLOL
     Dosage: 1.25 MILLIGRAM, QD, 1.25 MG 1 TABLET DAILY
     Route: 048
     Dates: start: 20250101
  8. BISOPROLOL [Suspect]
     Active Substance: BISOPROLOL
     Dosage: 1.25 MILLIGRAM, QD, 1.25 MG 1 TABLET DAILY
     Dates: start: 20250101
  9. LEVOTHYROXINE SODIUM [Concomitant]
     Active Substance: LEVOTHYROXINE SODIUM
     Indication: Hypothyroidism
     Dosage: 100 MILLIGRAM, 100MG 1 TABLET DAILY FOR FOUR DAYS + 75MG 1 TABLET DAILY FOR THREE DAYS
     Dates: start: 20250101
  10. LEVOTHYROXINE SODIUM [Concomitant]
     Active Substance: LEVOTHYROXINE SODIUM
     Dosage: 100 MILLIGRAM, 100MG 1 TABLET DAILY FOR FOUR DAYS + 75MG 1 TABLET DAILY FOR THREE DAYS
     Route: 048
     Dates: start: 20250101
  11. LEVOTHYROXINE SODIUM [Concomitant]
     Active Substance: LEVOTHYROXINE SODIUM
     Dosage: 100 MILLIGRAM, 100MG 1 TABLET DAILY FOR FOUR DAYS + 75MG 1 TABLET DAILY FOR THREE DAYS
     Route: 048
     Dates: start: 20250101
  12. LEVOTHYROXINE SODIUM [Concomitant]
     Active Substance: LEVOTHYROXINE SODIUM
     Dosage: 100 MILLIGRAM, 100MG 1 TABLET DAILY FOR FOUR DAYS + 75MG 1 TABLET DAILY FOR THREE DAYS
     Dates: start: 20250101
  13. LEVOTHYROXINE SODIUM [Concomitant]
     Active Substance: LEVOTHYROXINE SODIUM
     Indication: Hypothyroidism
     Dosage: 75 MILLIGRAM, QD, 100MG 1 TABLET DAILY FOR FOUR DAYS + 75MG 1 TABLET DAILY FOR THREE DAYS
  14. LEVOTHYROXINE SODIUM [Concomitant]
     Active Substance: LEVOTHYROXINE SODIUM
     Dosage: 75 MILLIGRAM, QD, 100MG 1 TABLET DAILY FOR FOUR DAYS + 75MG 1 TABLET DAILY FOR THREE DAYS
     Route: 048
  15. LEVOTHYROXINE SODIUM [Concomitant]
     Active Substance: LEVOTHYROXINE SODIUM
     Dosage: 75 MILLIGRAM, QD, 100MG 1 TABLET DAILY FOR FOUR DAYS + 75MG 1 TABLET DAILY FOR THREE DAYS
     Route: 048
  16. LEVOTHYROXINE SODIUM [Concomitant]
     Active Substance: LEVOTHYROXINE SODIUM
     Dosage: 75 MILLIGRAM, QD, 100MG 1 TABLET DAILY FOR FOUR DAYS + 75MG 1 TABLET DAILY FOR THREE DAYS
  17. XANAX [Concomitant]
     Active Substance: ALPRAZOLAM
     Dosage: 0.5 MILLIGRAM, QD, 0.5MG ONCE DAILY
     Dates: start: 20250101
  18. XANAX [Concomitant]
     Active Substance: ALPRAZOLAM
     Dosage: 0.5 MILLIGRAM, QD, 0.5MG ONCE DAILY
     Route: 048
     Dates: start: 20250101
  19. XANAX [Concomitant]
     Active Substance: ALPRAZOLAM
     Dosage: 0.5 MILLIGRAM, QD, 0.5MG ONCE DAILY
     Route: 048
     Dates: start: 20250101
  20. XANAX [Concomitant]
     Active Substance: ALPRAZOLAM
     Dosage: 0.5 MILLIGRAM, QD, 0.5MG ONCE DAILY
     Dates: start: 20250101

REACTIONS (1)
  - Treatment failure [Unknown]

NARRATIVE: CASE EVENT DATE: 20250806
